FAERS Safety Report 20826298 (Version 1)
Quarter: 2022Q2

REPORT INFORMATION
  Report Type: Spontaneous
  Country: GB (occurrence: GB)
  Receive Date: 20220513
  Receipt Date: 20220513
  Transmission Date: 20220720
  Serious: Yes (Hospitalization)
  Sender: FDA-Public Use
  Company Number: GB-NOVOPROD-916566

PATIENT
  Age: 74 Year
  Sex: Female

DRUGS (1)
  1. NORDITROPIN [Suspect]
     Active Substance: SOMATROPIN
     Indication: Growth hormone deficiency
     Dosage: 0.3 MG, QD(ROUTE: AS DIRECTED. )
     Route: 065
     Dates: start: 20140311

REACTIONS (2)
  - Sepsis [Not Recovered/Not Resolved]
  - Pneumonia [Unknown]
